FAERS Safety Report 12310955 (Version 2)
Quarter: 2017Q2

REPORT INFORMATION
  Report Type: Spontaneous
  Country: US (occurrence: US)
  Receive Date: 20160427
  Receipt Date: 20170615
  Transmission Date: 20170830
  Serious: No
  Sender: FDA-Public Use
  Company Number: US-PFIZER INC-2016230261

PATIENT
  Sex: Female

DRUGS (3)
  1. ZITHROMAX [Suspect]
     Active Substance: AZITHROMYCIN DIHYDRATE
     Dosage: UNK
  2. CECLOR [Suspect]
     Active Substance: CEFACLOR
     Dosage: UNK
  3. EXCEDRIN BACK AND BODY [Suspect]
     Active Substance: ACETAMINOPHEN\ASPIRIN
     Dosage: UNK

REACTIONS (2)
  - Urticaria [Unknown]
  - Drug hypersensitivity [Unknown]
